FAERS Safety Report 15752097 (Version 1)
Quarter: 2018Q4

REPORT INFORMATION
  Report Type: Spontaneous
  Country: US (occurrence: US)
  Receive Date: 20181221
  Receipt Date: 20181221
  Transmission Date: 20190205
  Serious: Yes (Other)
  Sender: FDA-Public Use
  Company Number: US-TEVA-2018-US-991365

PATIENT
  Sex: Female
  Weight: 70.31 kg

DRUGS (1)
  1. LORAZEPAM ACTAVIS [Suspect]
     Active Substance: LORAZEPAM
     Dosage: 1 MILLIGRAM DAILY; HALF TABLET BEFORE BED AND HALF IN THE MIDDLE OF THE NIGHT
     Route: 048
     Dates: start: 20181026, end: 20181103

REACTIONS (5)
  - Reaction to excipient [Unknown]
  - Migraine [Recovering/Resolving]
  - Nausea [Recovered/Resolved]
  - Disease risk factor [Unknown]
  - Pain [Unknown]
